FAERS Safety Report 23945901 (Version 3)
Quarter: 2024Q4

REPORT INFORMATION
  Report Type: Spontaneous
  Country: CA (occurrence: CA)
  Receive Date: 20240606
  Receipt Date: 20241126
  Transmission Date: 20250115
  Serious: Yes (Other)
  Sender: SANDOZ
  Company Number: CA-SANDOZ-SDZ2024CA053286

PATIENT
  Sex: Female

DRUGS (2)
  1. ERELZI [Suspect]
     Active Substance: ETANERCEPT-SZZS
     Indication: Ankylosing spondylitis
     Dosage: 50 MG, QW 50MG/ML (PEN)
     Route: 058
     Dates: start: 20240624
  2. HYRIMOZ [Suspect]
     Active Substance: ADALIMUMAB-ADAZ
     Indication: Ankylosing spondylitis
     Dosage: 40 MG, Q2W
     Route: 058
     Dates: start: 20240603

REACTIONS (8)
  - Blood cholesterol increased [Unknown]
  - Diarrhoea [Unknown]
  - Fatigue [Unknown]
  - Myocardial infarction [Unknown]
  - Abdominal pain [Unknown]
  - Foot deformity [Unknown]
  - General physical health deterioration [Unknown]
  - Paraesthesia [Unknown]
